FAERS Safety Report 23874274 (Version 1)
Quarter: 2024Q2

REPORT INFORMATION
  Report Type: Report from Study
  Country: US (occurrence: US)
  Receive Date: 20240520
  Receipt Date: 20240520
  Transmission Date: 20240716
  Serious: Yes (Life-Threatening, Hospitalization)
  Sender: FDA-Public Use
  Company Number: US-002147023-NVSC2024US105780

PATIENT
  Age: 76 Year
  Sex: Female

DRUGS (3)
  1. MAYZENT [Suspect]
     Active Substance: SIPONIMOD
     Indication: Clinically isolated syndrome
     Dosage: 2 MG, OTHER (1 TAB 0.25MG, DAY 2 1 TAB 0.25MG, DAY 3 2 TABS TOTAL 0.5MG, DAY 4 3 TABS TOTAL 0.75MG,
     Route: 048
     Dates: start: 20240510, end: 20240511
  2. MAYZENT [Suspect]
     Active Substance: SIPONIMOD
     Indication: Relapsing-remitting multiple sclerosis
  3. MAYZENT [Suspect]
     Active Substance: SIPONIMOD
     Indication: Secondary progressive multiple sclerosis

REACTIONS (5)
  - Swelling [Recovering/Resolving]
  - Heart rate increased [Recovering/Resolving]
  - Urticaria [Recovering/Resolving]
  - Pruritus [Recovered/Resolved]
  - Dyspnoea [Recovering/Resolving]

NARRATIVE: CASE EVENT DATE: 20240512
